FAERS Safety Report 12699975 (Version 1)
Quarter: 2016Q3

REPORT INFORMATION
  Report Type: Spontaneous
  Country: US (occurrence: US)
  Receive Date: 20160830
  Receipt Date: 20160830
  Transmission Date: 20161109
  Serious: Yes (Other)
  Sender: FDA-Public Use
  Company Number: US-MYLANLABS-2016M1036103

PATIENT

DRUGS (1)
  1. LEVOTHYROXINE SODIUM TABLETS, USP [Suspect]
     Active Substance: LEVOTHYROXINE SODIUM
     Dosage: 50 ?G, AM
     Route: 048
     Dates: start: 201310, end: 20160825

REACTIONS (3)
  - Hypersensitivity [Recovered/Resolved]
  - Reaction to drug excipients [Recovered/Resolved]
  - Blood pressure decreased [Recovered/Resolved]
